FAERS Safety Report 10370563 (Version 1)
Quarter: 2014Q1

REPORT INFORMATION
  Report Type: Spontaneous
  Country: US (occurrence: None)
  Receive Date: 20140306
  Receipt Date: 20140306
  Transmission Date: 20141002
  Serious: Yes (Hospitalization)
  Sender: FDA-Public Use
  Company Number: 163-21880-13093850

PATIENT
  Age: 85 Year
  Sex: Female

DRUGS (6)
  1. REVLIMID [Suspect]
     Indication: MYELODYSPLASTIC SYNDROME
     Dosage: 28 IN 28 D?PERMANETLY DISCONTINUED
     Route: 048
     Dates: start: 20130905
  2. LEVOTHYROXINE SODIUM [Concomitant]
  3. LISINOPRIL-HYDROCHLOROTHIAZIDE (ZESTORETIC) [Concomitant]
  4. METOPROLOL TARTRATE [Concomitant]
  5. METFORMIN HCL (METFORMIN HYDROCHLORIDE) [Concomitant]
  6. GLIPIZIDE [Concomitant]

REACTIONS (6)
  - Hypoglycaemia [None]
  - Dyspepsia [None]
  - Nausea [None]
  - Vomiting [None]
  - Fatigue [None]
  - Asthenia [None]
